FAERS Safety Report 11319442 (Version 1)
Quarter: 2015Q3

REPORT INFORMATION
  Report Type: Spontaneous
  Country: RO (occurrence: None)
  Receive Date: 20150727
  Receipt Date: 20150727
  Transmission Date: 20151125
  Serious: Yes (Death, Hospitalization, Disabling)
  Sender: FDA-Public Use
  Company Number: 2015-001529

PATIENT
  Age: 68 Year
  Sex: Female
  Weight: 62 kg

DRUGS (5)
  1. DIGOXIN. [Concomitant]
     Active Substance: DIGOXIN
  2. CRESTOR [Concomitant]
     Active Substance: ROSUVASTATIN CALCIUM
  3. ACTONEL [Suspect]
     Active Substance: RISEDRONATE SODIUM
     Indication: OSTEOPOROSIS
     Dosage: 75 MG, 2 CONSECUTIVE DAYS MONTHLY
     Route: 048
     Dates: start: 20150617, end: 20150618
  4. METOPROLOL [Concomitant]
     Active Substance: METOPROLOL
  5. VEROSPIRON (SPIRONOLACTONE) [Concomitant]

REACTIONS (2)
  - Ischaemic stroke [None]
  - Cerebrovascular accident [None]

NARRATIVE: CASE EVENT DATE: 20150618
